FAERS Safety Report 14185636 (Version 1)
Quarter: 2017Q4

REPORT INFORMATION
  Report Type: Spontaneous
  Country: FR (occurrence: FR)
  Receive Date: 20171114
  Receipt Date: 20171114
  Transmission Date: 20180321
  Serious: Yes (Hospitalization, Disabling, Other)
  Sender: FDA-Public Use
  Company Number: FR-PFIZER INC-2017482939

PATIENT
  Age: 64 Year
  Sex: Male

DRUGS (16)
  1. DUROGESIC [Suspect]
     Active Substance: FENTANYL
     Dosage: 300 UG EVERY 72 HOURS
     Route: 062
     Dates: start: 20171012
  2. PREGABALIN. [Concomitant]
     Active Substance: PREGABALIN
     Dosage: 100 MG, 2X/DAY
  3. DUROGESIC [Suspect]
     Active Substance: FENTANYL
     Indication: CANCER PAIN
     Dosage: 225 UG, UNK
     Route: 062
     Dates: start: 20170419, end: 20171012
  4. SERESTA [Concomitant]
     Active Substance: OXAZEPAM
     Dosage: 1.5 DF, DAILY
  5. LYRICA [Suspect]
     Active Substance: PREGABALIN
     Indication: CANCER PAIN
     Dosage: 150 MG, DAILY
     Route: 048
     Dates: start: 20170907, end: 20171012
  6. PECFENT [Suspect]
     Active Substance: FENTANYL CITRATE
     Indication: CANCER PAIN
     Dosage: 100 UG/PULVERISATION EVERY 2 HOURS
     Route: 045
     Dates: start: 20170907, end: 20171012
  7. MORPHINE RENAUDIN [Suspect]
     Active Substance: MORPHINE
     Indication: CANCER PAIN
     Dosage: 300 MG, DAILY
     Route: 042
     Dates: start: 20171012
  8. PECFENT [Suspect]
     Active Substance: FENTANYL CITRATE
     Dosage: 400 UG, 2 PULVERISATION/2H (800 UG EVERY 2 HOURS)
     Route: 045
     Dates: start: 20171012
  9. ESCITALOPRAM [Concomitant]
     Active Substance: ESCITALOPRAM OXALATE
     Dosage: 20 MG, DAILY
  10. L-THYROXINE [Concomitant]
     Active Substance: LEVOTHYROXINE
     Dosage: 25 DF, DAILY
  11. LYRICA [Suspect]
     Active Substance: PREGABALIN
     Dosage: 400 MG, DAILY
     Route: 048
     Dates: start: 20171012
  12. MOVICOL [Concomitant]
     Active Substance: POLYETHYLENE GLYCOL 3350\POTASSIUM CHLORIDE\SODIUM BICARBONATE\SODIUM CHLORIDE
     Dosage: 2 DF, DAILY
  13. SOLUPRED [Concomitant]
     Active Substance: PREDNISOLONE
     Dosage: 60 MG, DAILY
  14. SCOPODERM [Concomitant]
     Active Substance: SCOPOLAMINE
     Dosage: 3 PATCHES, DAILY
  15. INEXIUM [Concomitant]
     Active Substance: ESOMEPRAZOLE
     Dosage: 20 MG, DAILY
  16. DOLIPRANE [Concomitant]
     Active Substance: ACETAMINOPHEN
     Dosage: 1 G, 4X/DAY

REACTIONS (10)
  - General physical health deterioration [Unknown]
  - Overdose [Unknown]
  - Gait inability [Unknown]
  - Sleep disorder [Unknown]
  - Fall [Recovered/Resolved with Sequelae]
  - Oedema peripheral [Unknown]
  - Product use in unapproved indication [Unknown]
  - Foot fracture [Recovering/Resolving]
  - Arthralgia [Unknown]
  - Oral pain [Unknown]

NARRATIVE: CASE EVENT DATE: 20170907
